FAERS Safety Report 23084872 (Version 4)
Quarter: 2023Q4

REPORT INFORMATION
  Report Type: Spontaneous
  Country: US (occurrence: US)
  Receive Date: 20231019
  Receipt Date: 20231208
  Transmission Date: 20240110
  Serious: Yes (Other)
  Sender: FDA-Public Use
  Company Number: US-PFIZER INC-PV202300171835

PATIENT
  Age: 84 Year
  Sex: Female
  Weight: 61.678 kg

DRUGS (5)
  1. TIKOSYN [Suspect]
     Active Substance: DOFETILIDE
     Indication: Atrial fibrillation
     Dosage: (EVERY 12 HOURS)
     Route: 048
     Dates: start: 20230614
  2. TIKOSYN [Suspect]
     Active Substance: DOFETILIDE
     Dosage: (EVERY 12 HOURS)
     Route: 048
     Dates: start: 20230918
  3. TIKOSYN [Suspect]
     Active Substance: DOFETILIDE
     Dosage: (EVERY 12 HOURS)
     Route: 048
     Dates: start: 20231031
  4. NITROSTAT [Suspect]
     Active Substance: NITROGLYCERIN
     Indication: Pain
     Dosage: DISSOLVE 1 TAB UNDER TONGUE EVERY 5 MINUTES AS NEEDED FOR PAIN
     Route: 060
     Dates: start: 20170809
  5. DUPIXENT [Concomitant]
     Active Substance: DUPILUMAB
     Dosage: UNK

REACTIONS (7)
  - Sinus node dysfunction [Unknown]
  - Hypertension [Unknown]
  - Syncope [Unknown]
  - Dyspnoea [Unknown]
  - Amnesia [Unknown]
  - Lipids abnormal [Unknown]
  - Off label use [Unknown]
